FAERS Safety Report 11750362 (Version 1)
Quarter: 2015Q4

REPORT INFORMATION
  Report Type: Spontaneous
  Country: BR (occurrence: BR)
  Receive Date: 20151118
  Receipt Date: 20151118
  Transmission Date: 20160304
  Serious: Yes (Other)
  Sender: FDA-Public Use
  Company Number: BR-ABBVIE-15P-020-1470276-00

PATIENT
  Sex: Male
  Weight: 95 kg

DRUGS (1)
  1. LUVOX [Suspect]
     Active Substance: FLUVOXAMINE MALEATE
     Indication: ANTIDEPRESSANT THERAPY
     Dosage: 50MG DAILY AT NIGHT
     Route: 048
     Dates: start: 201310

REACTIONS (1)
  - Diabetes mellitus [Not Recovered/Not Resolved]
